FAERS Safety Report 10843691 (Version 1)
Quarter: 2015Q1

REPORT INFORMATION
  Report Type: Spontaneous
  Country: AU (occurrence: AU)
  Receive Date: 20150220
  Receipt Date: 20150220
  Transmission Date: 20150721
  Serious: Yes (Other)
  Sender: FDA-Public Use
  Company Number: AU-CELGENE-AUS-2015022915

PATIENT

DRUGS (2)
  1. AZACITIDINE INJECTABLE [Suspect]
     Active Substance: AZACITIDINE
     Indication: ACUTE MYELOID LEUKAEMIA
     Dosage: 50-75MG/M2
     Route: 058
  2. REVLIMID [Suspect]
     Active Substance: LENALIDOMIDE
     Indication: ACUTE MYELOID LEUKAEMIA
     Dosage: 0-25MG
     Route: 048

REACTIONS (36)
  - Mucosal inflammation [Unknown]
  - Anal fissure [Unknown]
  - Neutropenia [Unknown]
  - Cough [Unknown]
  - Gastrooesophageal reflux disease [Unknown]
  - Dry mouth [Unknown]
  - Paraesthesia [Unknown]
  - Plantar fasciitis [Unknown]
  - Injection site pain [Unknown]
  - Injection site reaction [Unknown]
  - Dyspnoea [Unknown]
  - Constipation [Unknown]
  - Disease recurrence [Unknown]
  - Thrombocytopenia [Unknown]
  - Peripheral vascular disorder [Unknown]
  - Pericardial effusion [Unknown]
  - Coordination abnormal [Unknown]
  - Eyelid disorder [Unknown]
  - Nausea [Unknown]
  - Cardiac failure [Unknown]
  - Anaemia [Unknown]
  - Decreased appetite [Unknown]
  - Hepatic function abnormal [Unknown]
  - Oropharyngeal pain [Unknown]
  - Oedema [Unknown]
  - Haemorrhage [Unknown]
  - Syncope [Unknown]
  - Renal impairment [Unknown]
  - Muscle spasms [Unknown]
  - Diarrhoea [Unknown]
  - Rash [Unknown]
  - Pruritus [Unknown]
  - Infection [Unknown]
  - Pneumonia [Unknown]
  - Abdominal distension [Unknown]
  - Fatigue [Unknown]
